FAERS Safety Report 13836042 (Version 1)
Quarter: 2017Q3

REPORT INFORMATION
  Report Type: Spontaneous
  Country: SK (occurrence: SK)
  Receive Date: 20170804
  Receipt Date: 20170804
  Transmission Date: 20171127
  Serious: Yes (Death, Other)
  Sender: FDA-Public Use
  Company Number: SK-APOPHARMA USA, INC.-2017AP016185

PATIENT
  Age: 8 Year
  Sex: Male
  Weight: 22 kg

DRUGS (5)
  1. CYCLOPHOSPHAMIDE. [Concomitant]
     Active Substance: CYCLOPHOSPHAMIDE
     Indication: SURGICAL PRECONDITIONING
     Dosage: UNK, UNKNOWN
     Route: 065
  2. ALKERAN [Suspect]
     Active Substance: MELPHALAN
     Indication: SURGICAL PRECONDITIONING
     Dosage: UNK UNK, UNKNOWN
     Route: 065
  3. ANTITHYMOCYTE IMMUNOGLOBULIN [Concomitant]
     Active Substance: THYMOCYTE IMMUNE GLOBULIN NOS
     Indication: PROPHYLAXIS AGAINST GRAFT VERSUS HOST DISEASE
     Dosage: UNK, UNKNOWN
     Route: 065
  4. CYCLOSPORIN A [Concomitant]
     Active Substance: CYCLOSPORINE
     Indication: PROPHYLAXIS AGAINST GRAFT VERSUS HOST DISEASE
     Dosage: UNK, UNKNOWN
     Route: 065
  5. TREOSULFAN [Concomitant]
     Active Substance: TREOSULFAN
     Indication: SURGICAL PRECONDITIONING
     Dosage: UNK, UNKNOWN
     Route: 065

REACTIONS (7)
  - Pneumonia [Unknown]
  - Multiple organ dysfunction syndrome [Fatal]
  - Pancytopenia [Unknown]
  - Cardiac arrest [Recovered/Resolved]
  - Respiratory failure [Not Recovered/Not Resolved]
  - Renal failure [Not Recovered/Not Resolved]
  - Fungal skin infection [Not Recovered/Not Resolved]
